FAERS Safety Report 8862389 (Version 3)
Quarter: 2013Q1

REPORT INFORMATION
  Report Type: Spontaneous
  Country: US (occurrence: US)
  Receive Date: 20121026
  Receipt Date: 20130325
  Transmission Date: 20140127
  Serious: Yes (Other)
  Sender: FDA-Public Use
  Company Number: US-BAYER-2012-111612

PATIENT
  Age: 26 Year
  Sex: Male
  Weight: 70.3 kg

DRUGS (2)
  1. AVELOX [Suspect]
     Indication: PNEUMONIA BACTERIAL
     Dosage: 400 MG, UNK
     Dates: start: 20121010, end: 20121010
  2. ALBUTEROL [Concomitant]
     Indication: ASTHMA
     Dosage: RARE, PRN

REACTIONS (6)
  - Palpitations [Recovering/Resolving]
  - Muscle spasms [None]
  - Dizziness [Recovering/Resolving]
  - Vertigo [Recovering/Resolving]
  - Adverse drug reaction [None]
  - Malaise [None]
